FAERS Safety Report 9320288 (Version 2)
Quarter: 2013Q3

REPORT INFORMATION
  Report Type: Spontaneous
  Country: US (occurrence: US)
  Receive Date: 20130530
  Receipt Date: 20130802
  Transmission Date: 20140515
  Serious: Yes (Other)
  Sender: FDA-Public Use
  Company Number: US-BAXTER-2013BAX020175

PATIENT
  Age: 52 Year
  Sex: Female
  Weight: 68.18 kg

DRUGS (6)
  1. GAMMAGARD S/D [Suspect]
     Indication: IMMUNODEFICIENCY COMMON VARIABLE
     Route: 042
     Dates: start: 20130516, end: 20130516
  2. GAMMAGARD S/D [Suspect]
     Route: 065
     Dates: start: 1999
  3. GAMMAGARD S/D [Suspect]
     Route: 065
     Dates: start: 2011
  4. MOTRIN [Concomitant]
     Indication: PREMEDICATION
     Dosage: PRIOR TO GAMMAGARD INFUSIONS; 2006/2007 TO ONGOING
     Route: 048
  5. MULTIVITAMINS [Concomitant]
     Indication: PRODUCT USED FOR UNKNOWN INDICATION
     Route: 048
  6. SOLUMEDROL [Concomitant]
     Indication: PREMEDICATION
     Dosage: 1999 TO 2006/2007; PRIOR TO GAMMAGARD INFUSIONS
     Dates: start: 1999

REACTIONS (5)
  - Meningitis aseptic [Recovered/Resolved]
  - Pain [Recovering/Resolving]
  - Headache [Recovering/Resolving]
  - Fatigue [Recovering/Resolving]
  - Back pain [Unknown]
